FAERS Safety Report 23847974 (Version 1)
Quarter: 2024Q2

REPORT INFORMATION
  Report Type: Spontaneous
  Country: US (occurrence: None)
  Receive Date: 20240510
  Receipt Date: 20240510
  Transmission Date: 20240716
  Serious: Yes (Other)
  Sender: FDA-Public Use
  Company Number: None

PATIENT
  Age: 58 Year
  Sex: Female
  Weight: 86.2 kg

DRUGS (1)
  1. ENBREL [Suspect]
     Active Substance: BENZYL ALCOHOL\ETANERCEPT
     Indication: Psoriatic arthropathy
     Dosage: OTHER QUANTITY : 50MG (1ML);?FREQUENCY : EVERY OTHER DAY;?
     Route: 058
     Dates: start: 20240416, end: 20240510

REACTIONS (2)
  - Vitiligo [None]
  - Therapy cessation [None]

NARRATIVE: CASE EVENT DATE: 20240510
